FAERS Safety Report 9070545 (Version 1)
Quarter: 2013Q1

REPORT INFORMATION
  Report Type: Spontaneous
  Country: ES (occurrence: ES)
  Receive Date: 20130215
  Receipt Date: 20130215
  Transmission Date: 20140127
  Serious: Yes (Death, Life-Threatening, Hospitalization)
  Sender: FDA-Public Use
  Company Number: ES-JNJFOC-20130200387

PATIENT
  Age: 67 Year
  Sex: Female

DRUGS (5)
  1. EPOETIN ALFA [Suspect]
     Indication: PRODUCT USED FOR UNKNOWN INDICATION
     Route: 065
     Dates: start: 20120831
  2. EPOETIN ALFA [Suspect]
     Indication: PRODUCT USED FOR UNKNOWN INDICATION
     Route: 065
     Dates: start: 20120305, end: 20120727
  3. FENTANYL [Suspect]
     Indication: PRODUCT USED FOR UNKNOWN INDICATION
     Route: 062
     Dates: start: 20120405
  4. CYCLOPHOSPHAMIDE [Concomitant]
     Indication: PLASMA CELL MYELOMA
     Route: 065
     Dates: start: 20130115, end: 20130128
  5. PREDNISONE [Concomitant]
     Indication: PLASMA CELL MYELOMA
     Route: 065
     Dates: start: 20130115, end: 20130128

REACTIONS (4)
  - Stupor [Fatal]
  - Disease progression [Fatal]
  - Coma [Unknown]
  - Lung infiltration [Unknown]
